FAERS Safety Report 23568208 (Version 1)
Quarter: 2024Q1

REPORT INFORMATION
  Report Type: Spontaneous
  Country: IL (occurrence: IL)
  Receive Date: 20240226
  Receipt Date: 20240226
  Transmission Date: 20240410
  Serious: Yes (Death, Other)
  Sender: FDA-Public Use
  Company Number: IL-BAXTER-2024BAX013237

PATIENT
  Age: 63 Year
  Sex: Male

DRUGS (8)
  1. SODIUM CHLORIDE [Suspect]
     Active Substance: SODIUM CHLORIDE
     Indication: Medication dilution
     Dosage: EACH VIAL OF AMPICILLIN MIXED WITH 10 ML OF SALINE 0.9% (12 VIALS) WHICH WERE PLACED IN A 1000 ML SA
     Route: 065
  2. AMPICILLIN [Suspect]
     Active Substance: AMPICILLIN
     Indication: Bacteraemia
     Dosage: AT A DOSE OF 12 GRAMS PER DAY UNTIL THE IDENTIFICATION OF BACTERIUM. EACH VIAL OF AMPICILLIN MIXED W
     Route: 065
  3. EPINEPHRINE [Suspect]
     Active Substance: EPINEPHRINE
     Indication: Suffocation feeling
     Dosage: 12 ROUNDS
     Route: 042
  4. EPINEPHRINE [Suspect]
     Active Substance: EPINEPHRINE
     Indication: Circulatory collapse
  5. HYDROCORTISONE [Suspect]
     Active Substance: HYDROCORTISONE
     Indication: Suffocation feeling
     Dosage: 12 ROUNDS
     Route: 042
  6. HYDROCORTISONE [Suspect]
     Active Substance: HYDROCORTISONE
     Indication: Circulatory collapse
  7. PHENERGAN [Suspect]
     Active Substance: PROMETHAZINE HYDROCHLORIDE
     Indication: Suffocation feeling
     Dosage: 12 ROUNDS
     Route: 042
  8. PHENERGAN [Suspect]
     Active Substance: PROMETHAZINE HYDROCHLORIDE
     Indication: Circulatory collapse

REACTIONS (3)
  - Death [Fatal]
  - Suffocation feeling [Unknown]
  - Circulatory collapse [Unknown]
